FAERS Safety Report 10038466 (Version 1)
Quarter: 2014Q1

REPORT INFORMATION
  Report Type: Spontaneous
  Country: US (occurrence: None)
  Receive Date: 20140306
  Receipt Date: 20140306
  Transmission Date: 20141002
  Serious: Yes (Hospitalization)
  Sender: FDA-Public Use
  Company Number: 163-21880-13052388

PATIENT
  Age: 77 Year
  Sex: Female

DRUGS (5)
  1. REVLIMID (LENALIDOMIDE) (10 MILLIGRAM, CAPSULES) [Suspect]
     Indication: PLASMA CELL MYELOMA
     Dosage: 10 MG, 1 IN 1 D, PO
     Route: 048
     Dates: start: 20110127, end: 20110607
  2. METOPROLOL (METOPROLOL) (CAPSULES) [Concomitant]
  3. NORVASC (AMLODIPINE BESILATE) [Concomitant]
  4. NEURONTIN (GABAPENTIN) [Concomitant]
  5. NOVOLOG (INSULIN ASPART) [Concomitant]

REACTIONS (3)
  - Injury [None]
  - Fall [None]
  - No therapeutic response [None]
